FAERS Safety Report 25529001 (Version 1)
Quarter: 2025Q3

REPORT INFORMATION
  Report Type: Spontaneous
  Country: PR (occurrence: None)
  Receive Date: 20250707
  Receipt Date: 20250707
  Transmission Date: 20251020
  Serious: Yes (Hospitalization)
  Sender: FDA-CTU
  Company Number: None

PATIENT
  Age: 43 Year
  Sex: Male

DRUGS (7)
  1. TACROLIMUS [Suspect]
     Active Substance: TACROLIMUS
     Indication: Stem cell transplant
     Dosage: 1.5 MG DAILY ORAL
     Route: 048
     Dates: start: 20250207, end: 20250515
  2. TACROLIMUS [Suspect]
     Active Substance: TACROLIMUS
     Indication: Stem cell transplant
     Dosage: 4 MG BID ORAL
     Route: 048
     Dates: start: 20241209, end: 20250206
  3. PREVYMIS [Concomitant]
     Active Substance: LETERMOVIR
  4. ACYCLOVIR [Concomitant]
     Active Substance: ACYCLOVIR
  5. Ursodiol 300mg [Concomitant]
  6. FAMOTIDINE [Concomitant]
     Active Substance: FAMOTIDINE
  7. Septra 400mg [Concomitant]

REACTIONS (2)
  - Encephalitis [None]
  - Therapy cessation [None]

NARRATIVE: CASE EVENT DATE: 20250515
